FAERS Safety Report 7966096-5 (Version None)
Quarter: 2011Q4

REPORT INFORMATION
  Report Type: 
  Country: None (occurrence: None)
  Receive Date: 20111208
  Receipt Date: 20111129
  Transmission Date: 20120403
  Serious: No
  Sender: FDA-Public Use
  Company Number: US-PFIZER INC-2011294397

PATIENT
  Sex: Female

DRUGS (10)
  1. ADVIL PM [Suspect]
     Dosage: UNK
  2. ZOLOFT [Concomitant]
     Indication: AFFECTIVE DISORDER
  3. ULTRAM [Concomitant]
     Indication: HEADACHE
  4. ORTHO-NOVUM [Concomitant]
     Dosage: UNK
     Dates: start: 19990301
  5. TYLENOL PM [Suspect]
     Dosage: 2 DAILY FOR APPROX. 4 YEARS.
  6. TOPAMAX [Concomitant]
     Indication: MIGRAINE
  7. ZOLOFT [Concomitant]
     Indication: DEPRESSION
  8. WELLBUTRIN [Concomitant]
     Indication: AFFECTIVE DISORDER
  9. ESTRADIOL [Suspect]
     Dosage: 1 MG, 1X/DAY
     Dates: start: 20110201
  10. WELLBUTRIN [Concomitant]
     Indication: DEPRESSION

REACTIONS (4)
  - RASH [None]
  - HOT FLUSH [None]
  - DRUG INEFFECTIVE [None]
  - SLEEP DISORDER [None]
